FAERS Safety Report 11358853 (Version 2)
Quarter: 2015Q3

REPORT INFORMATION
  Report Type: Spontaneous
  Country: None (occurrence: None)
  Receive Date: 20150713
  Receipt Date: 20150730
  Transmission Date: 20151125
  Serious: Yes (Hospitalization)
  Sender: FDA-Public Use
  Company Number: 1713747-2015-999198

PATIENT
  Age: 38 Year
  Sex: Male
  Weight: 90 kg

DRUGS (14)
  1. DELFLEX [Suspect]
     Active Substance: CALCIUM CHLORIDE\DEXTROSE MONOHYDRATE\MAGNESIUM CHLORIDE\SODIUM CHLORIDE\SODIUM LACTATE
     Indication: PERITONEAL DIALYSIS
     Route: 033
  2. LASIX [Concomitant]
     Active Substance: FUROSEMIDE
  3. CARDIZEM [Concomitant]
     Active Substance: DILTIAZEM HYDROCHLORIDE
  4. PROTONIX [Concomitant]
     Active Substance: PANTOPRAZOLE SODIUM
  5. LABETALOL [Concomitant]
     Active Substance: LABETALOL\LABETALOL HYDROCHLORIDE
  6. HYDRALAZINE [Concomitant]
     Active Substance: HYDRALAZINE HYDROCHLORIDE
  7. CALCITRIOL. [Concomitant]
     Active Substance: CALCITRIOL
  8. ZAROXYLYN [Concomitant]
  9. ZESTRIL [Concomitant]
     Active Substance: LISINOPRIL
  10. LEVEMIR [Concomitant]
     Active Substance: INSULIN DETEMIR
  11. MINOXIDIL. [Concomitant]
     Active Substance: MINOXIDIL
  12. CATAPRES [Concomitant]
     Active Substance: CLONIDINE HYDROCHLORIDE
  13. FERROUS SULFATE [Concomitant]
     Active Substance: FERROUS SULFATE\FERROUS SULFATE, DRIED
  14. PHOS-LO [Concomitant]

REACTIONS (1)
  - Hypokalaemia [None]

NARRATIVE: CASE EVENT DATE: 20150605
